FAERS Safety Report 5898040-9 (Version None)
Quarter: 2008Q3

REPORT INFORMATION
  Report Type: 
  Country: None (occurrence: None)
  Receive Date: 20080905
  Receipt Date: 20080505
  Transmission Date: 20090109
  Serious: Yes (Disabling)
  Sender: FDA-Public Use
  Company Number: WAES 0805USA00789

PATIENT
  Age: 49 Year
  Sex: Female

DRUGS (3)
  1. TAB MAXALT [Suspect]
     Indication: MIGRAINE
     Dosage: 10 MG/1X/PO
     Route: 048
     Dates: start: 20080503, end: 20080503
  2. SINGULAIR [Concomitant]
  3. SYNTHROID [Concomitant]

REACTIONS (1)
  - SOMNOLENCE [None]
